FAERS Safety Report 6339812-6 (Version None)
Quarter: 2009Q3

REPORT INFORMATION
  Report Type: 
  Country: None (occurrence: None)
  Receive Date: 20090903
  Receipt Date: 20090825
  Transmission Date: 20100115
  Serious: Yes (Other)
  Sender: FDA-Public Use
  Company Number: PHHY2009JP36336

PATIENT
  Age: 61 Year
  Sex: Female

DRUGS (3)
  1. DIOVAN [Suspect]
     Indication: HYPERTENSION
     Dosage: UNK
     Route: 048
     Dates: start: 20090201
  2. NORVASC [Concomitant]
     Dosage: 5 MG, UNK
     Route: 048
  3. AROTINOLOL HYDROCHLORIDE [Concomitant]
     Dosage: 10 MG, UNK
     Route: 048

REACTIONS (2)
  - PHOTOSENSITIVITY REACTION [None]
  - RASH [None]
